FAERS Safety Report 8258212-5 (Version None)
Quarter: 2012Q2

REPORT INFORMATION
  Report Type: 
  Country: None (occurrence: None)
  Receive Date: 20120403
  Receipt Date: 20120403
  Transmission Date: 20120825
  Serious: Yes (Disabling, Other)
  Sender: FDA-Public Use
  Company Number: None

PATIENT
  Age: 49 Year
  Sex: Female
  Weight: 81.6475 kg

DRUGS (2)
  1. PROTOPIC [Suspect]
     Indication: DRY SKIN
     Dosage: TOPICAL TWICE DAILY TOPICAL
     Route: 061
     Dates: start: 20120306, end: 20120309
  2. PROTOPIC [Suspect]
     Indication: ROSACEA
     Dosage: TOPICAL TWICE DAILY TOPICAL
     Route: 061
     Dates: start: 20120306, end: 20120309

REACTIONS (3)
  - PAIN [None]
  - SCAR [None]
  - SUBCUTANEOUS ABSCESS [None]
